FAERS Safety Report 23100630 (Version 1)
Quarter: 2023Q4

REPORT INFORMATION
  Report Type: Spontaneous
  Country: US (occurrence: None)
  Receive Date: 20231020
  Receipt Date: 20231020
  Transmission Date: 20240110
  Serious: Yes (Hospitalization)
  Sender: FDA-Public Use
  Company Number: None

PATIENT
  Age: 25 Year
  Sex: Male

DRUGS (1)
  1. SULFAMETHOXAZOLE AND TRIMETHOPRIM [Suspect]
     Active Substance: SULFAMETHOXAZOLE\TRIMETHOPRIM
     Dosage: OTHER QUANTITY : 1 TAB;?FREQUENCY : TWICE A DAY;?
     Route: 048
     Dates: start: 20230118, end: 20230123

REACTIONS (2)
  - Pyrexia [None]
  - Pancytopenia [None]

NARRATIVE: CASE EVENT DATE: 20230125
